FAERS Safety Report 5374092-X (Version None)
Quarter: 2007Q2

REPORT INFORMATION
  Report Type: 
  Country: None (occurrence: None)
  Receive Date: 20070627
  Receipt Date: 20070618
  Transmission Date: 20071010
  Serious: Yes (Death)
  Sender: FDA-Public Use
  Company Number: 1-15028701/MED 07131

PATIENT
  Age: 42 Year
  Sex: Male

DRUGS (6)
  1. QUININE INJECTION (STRENGTH AND MFR. UNK) [Suspect]
     Indication: MALARIA
     Dosage: 600MG X 1 DOSE, INTRAVENOUS
     Route: 042
  2. ARTESUNATE [Suspect]
     Indication: MALARIA
  3. LACTATED RINGER'S [Concomitant]
  4. UNSPECIFIED MEDICATION [Concomitant]
  5. AMOXICILLIN TRIHYDRATE [Concomitant]
  6. PARACETAMOL [Concomitant]

REACTIONS (9)
  - BLOOD PRESSURE DECREASED [None]
  - BODY TEMPERATURE DECREASED [None]
  - CONFUSIONAL STATE [None]
  - DIZZINESS [None]
  - DYSPNOEA [None]
  - FACE INJURY [None]
  - FALL [None]
  - HEADACHE [None]
  - SPEECH DISORDER [None]
